FAERS Safety Report 6061380-7 (Version None)
Quarter: 2009Q1

REPORT INFORMATION
  Report Type: 
  Country: None (occurrence: None)
  Receive Date: 20090129
  Receipt Date: 20090129
  Transmission Date: 20090719
  Serious: Yes (Other)
  Sender: FDA-Public Use
  Company Number: None

PATIENT
  Sex: Male
  Weight: 81.1939 kg

DRUGS (2)
  1. SUTENT [Suspect]
     Indication: RENAL CELL CARCINOMA
     Dosage: 37.5MG 1 DAILY FOR 4 WEEK, THEN 2 WEEKS OFF, PO
     Route: 048
     Dates: start: 20081101, end: 20081114
  2. SUTENT [Suspect]

REACTIONS (6)
  - DYSPEPSIA [None]
  - DYSPNOEA [None]
  - HEART RATE INCREASED [None]
  - PAIN [None]
  - PAIN IN EXTREMITY [None]
  - PANIC ATTACK [None]
